FAERS Safety Report 15572981 (Version 2)
Quarter: 2020Q2

REPORT INFORMATION
  Report Type: Spontaneous
  Country: US (occurrence: US)
  Receive Date: 20181031
  Receipt Date: 20200625
  Transmission Date: 20200713
  Serious: No
  Sender: FDA-Public Use
  Company Number: US-SA-2018SA297645

PATIENT

DRUGS (1)
  1. ASPERCREME NOS [Suspect]
     Active Substance: MENTHOL\TROLAMINE SALICYLATE
     Dosage: UNK

REACTIONS (2)
  - Arthritis [Unknown]
  - Pain [Unknown]
